FAERS Safety Report 14373730 (Version 1)
Quarter: 2018Q1

REPORT INFORMATION
  Report Type: Spontaneous
  Country: GB (occurrence: GB)
  Receive Date: 20180110
  Receipt Date: 20180110
  Transmission Date: 20180509
  Serious: Yes (Hospitalization, Other)
  Sender: FDA-Public Use
  Company Number: GB-MYLANLABS-2018M1001036

PATIENT
  Age: 45 Year
  Sex: Male

DRUGS (2)
  1. CLOZARIL [Suspect]
     Active Substance: CLOZAPINE
     Indication: SCHIZOPHRENIA
     Dosage: UNK
     Route: 048
     Dates: start: 20000314, end: 20171227
  2. CLOZARIL [Suspect]
     Active Substance: CLOZAPINE
     Dosage: 2800 MG, UNK
     Route: 048
     Dates: start: 20180101

REACTIONS (3)
  - Overdose [Unknown]
  - Substance abuse [Unknown]
  - No adverse event [Unknown]

NARRATIVE: CASE EVENT DATE: 201712
